FAERS Safety Report 8954779 (Version 3)
Quarter: 2012Q4

REPORT INFORMATION
  Report Type: Report from Study
  Country: IE (occurrence: IE)
  Receive Date: 20121207
  Receipt Date: 20121219
  Transmission Date: 20130627
  Serious: Yes (Hospitalization)
  Sender: FDA-Public Use
  Company Number: IE-GLAXOSMITHKLINE-B0850375A

PATIENT
  Age: 41 Year
  Sex: Female
  Weight: 70 kg

DRUGS (15)
  1. LAPATINIB [Suspect]
     Indication: BREAST CANCER
     Dosage: 1000MG Per day
     Route: 048
     Dates: start: 20120809
  2. TRASTUZUMAB [Suspect]
     Indication: BREAST CANCER
     Dosage: 420MG Cyclic
     Route: 042
     Dates: start: 20120809
  3. DOCETAXEL [Suspect]
     Indication: BREAST CANCER
     Dosage: 130MG Cyclic
     Route: 042
     Dates: start: 20120809
  4. CARBOPLATIN [Suspect]
     Indication: BREAST CANCER
     Dosage: 880MG Cyclic
     Route: 042
     Dates: start: 20120809
  5. ESCITALOPRAM [Concomitant]
     Indication: DEPRESSION
     Route: 048
     Dates: start: 2008
  6. MAGNESIUM VERLA [Concomitant]
     Indication: HYPOMAGNESAEMIA
     Dosage: 3G Per day
     Route: 048
     Dates: start: 20121026
  7. CALCICHEW [Concomitant]
     Indication: HYPOCALCAEMIA
     Route: 048
     Dates: start: 20121122
  8. IMODIUM [Concomitant]
     Indication: DIARRHOEA
     Dosage: 16MG Per day
     Route: 048
     Dates: start: 20120811
  9. MEBEVERINE [Concomitant]
     Indication: IRRITABLE BOWEL SYNDROME
     Dosage: 540MG Per day
     Route: 048
     Dates: start: 2010
  10. ALPRAZOLAM [Concomitant]
     Indication: ANXIETY
     Dosage: .5MG Per day
     Route: 048
     Dates: start: 20120715
  11. LANSOPRAZOLE [Concomitant]
     Indication: GASTROOESOPHAGEAL REFLUX DISEASE
     Dosage: 30MG Per day
     Route: 048
     Dates: start: 20120808
  12. CYCLIZINE [Concomitant]
     Indication: NAUSEA
     Dosage: 150MG As required
     Route: 048
     Dates: start: 20120810
  13. ONDANSETRON [Concomitant]
     Indication: NAUSEA
     Dosage: 24MG As required
     Route: 048
     Dates: start: 20120929
  14. DEXAMETHASONE [Concomitant]
     Dosage: 8MG Twice per day
     Route: 042
     Dates: start: 20121121
  15. NEULASTA [Concomitant]
     Dates: start: 20121124

REACTIONS (4)
  - Diarrhoea [Recovered/Resolved]
  - Hypomagnesaemia [Recovered/Resolved]
  - Hypokalaemia [Recovered/Resolved]
  - Neutropenia [Recovered/Resolved]
